FAERS Safety Report 21607022 (Version 1)
Quarter: 2022Q4

REPORT INFORMATION
  Report Type: Spontaneous
  Country: US (occurrence: US)
  Receive Date: 20221117
  Receipt Date: 20221117
  Transmission Date: 20230113
  Serious: No
  Sender: FDA-Public Use
  Company Number: US-BRISTOL-MYERS SQUIBB COMPANY-2022-138036

PATIENT
  Age: 76 Year
  Sex: Male

DRUGS (8)
  1. OPDIVO [Suspect]
     Active Substance: NIVOLUMAB
     Indication: Mesothelioma
     Dosage: DOSE: 10 MG/ML, A TOTAL OF 12 ML (2)
     Route: 065
     Dates: start: 202108
  2. YERVOY [Suspect]
     Active Substance: IPILIMUMAB
     Indication: Mesothelioma
     Dosage: 5 MG/ML FOR A TOTAL OF 10 ML
     Route: 065
  3. FINASTERIDE [Concomitant]
     Active Substance: FINASTERIDE
     Indication: Prostatomegaly
     Route: 065
  4. LISINOPRIL [Concomitant]
     Active Substance: LISINOPRIL
     Indication: Product used for unknown indication
     Route: 065
  5. ASPIRIN [Concomitant]
     Active Substance: ASPIRIN
     Indication: Product used for unknown indication
     Route: 065
  6. PREDNISONE [Concomitant]
     Active Substance: PREDNISONE
     Indication: Joint stiffness
     Route: 065
     Dates: start: 202204
  7. PREDNISONE [Concomitant]
     Active Substance: PREDNISONE
     Route: 065
  8. CALCIUM\CHOLECALCIFEROL [Concomitant]
     Active Substance: CALCIUM\CHOLECALCIFEROL
     Indication: Product used for unknown indication
     Route: 065

REACTIONS (13)
  - Gait disturbance [Unknown]
  - Arthralgia [Unknown]
  - Cough [Unknown]
  - Wheezing [Unknown]
  - Rhinorrhoea [Unknown]
  - Fatigue [Unknown]
  - Flatulence [Unknown]
  - Abdominal pain upper [Unknown]
  - Diarrhoea [Unknown]
  - Ear pruritus [Unknown]
  - Pruritus [Unknown]
  - Dyspnoea [Unknown]
  - Arthralgia [Unknown]
